FAERS Safety Report 6903049-X (Version None)
Quarter: 2010Q3

REPORT INFORMATION
  Report Type: 
  Country: None (occurrence: None)
  Receive Date: 20100803
  Receipt Date: 20080629
  Transmission Date: 20110219
  Serious: No
  Sender: FDA-Public Use
  Company Number: US-PFIZER INC-2008055733

PATIENT
  Age: 70 Year
  Sex: Female

DRUGS (3)
  1. LYRICA [Suspect]
     Indication: FIBROMYALGIA
     Dates: start: 20080601, end: 20080601
  2. IBUPROFEN [Concomitant]
  3. DRUG, UNSPECIFIED [Concomitant]

REACTIONS (4)
  - BURNING SENSATION [None]
  - DIZZINESS [None]
  - SOMNOLENCE [None]
  - VISION BLURRED [None]
